FAERS Safety Report 10207615 (Version 1)
Quarter: 2014Q2

REPORT INFORMATION
  Report Type: Spontaneous
  Country: US (occurrence: US)
  Receive Date: 20140530
  Receipt Date: 20140530
  Transmission Date: 20141212
  Serious: No
  Sender: FDA-Public Use
  Company Number: US-GLAXOSMITHKLINE-A1052074A

PATIENT
  Age: 79 Year
  Sex: Female

DRUGS (13)
  1. VENTOLIN [Suspect]
     Indication: CHRONIC OBSTRUCTIVE PULMONARY DISEASE
     Dosage: 2PUFF AS REQUIRED
     Route: 055
  2. ALBUTEROL NEBULIZER [Concomitant]
  3. COUMADIN [Concomitant]
  4. LANOXIN [Concomitant]
  5. TIAZAC [Concomitant]
  6. LASIX [Concomitant]
  7. NEXIUM [Concomitant]
  8. ZOCOR [Concomitant]
  9. VALIUM [Concomitant]
  10. SPIRIVA [Concomitant]
  11. ADVAIR [Concomitant]
  12. REQUIP [Concomitant]
  13. TOPROL XL [Concomitant]

REACTIONS (4)
  - Chronic obstructive pulmonary disease [Not Recovered/Not Resolved]
  - Cough [Unknown]
  - Drug administration error [Unknown]
  - Product quality issue [Unknown]
